FAERS Safety Report 8163258-1 (Version None)
Quarter: 2012Q1

REPORT INFORMATION
  Report Type: 
  Country: None (occurrence: None)
  Receive Date: 20120224
  Receipt Date: 20110329
  Transmission Date: 20120608
  Serious: No
  Sender: FDA-Public Use
  Company Number: US-PFIZER INC-K201100375

PATIENT
  Age: 70 Year
  Sex: Female
  Weight: 58.05 kg

DRUGS (7)
  1. VITAMIN D [Concomitant]
     Dosage: UNK
  2. FLECTOR [Suspect]
     Dosage: 1 PATCH FOR 8-9 HOURS, SINGLE
     Route: 061
     Dates: start: 20110328, end: 20110328
  3. FOLIC ACID [Concomitant]
     Dosage: UNK
  4. NORVASC [Concomitant]
     Indication: HYPERTENSION
     Dosage: UNK
  5. LIPITOR [Concomitant]
     Dosage: UNK
  6. FLECTOR [Suspect]
     Indication: MUSCLE STRAIN
     Dosage: 1 PATCH FOR 12 HOURS DAILY
     Route: 061
     Dates: start: 20090101, end: 20090101
  7. VITAMIN TAB [Concomitant]
     Dosage: UNK

REACTIONS (4)
  - ABDOMINAL DISCOMFORT [None]
  - BLOOD PRESSURE SYSTOLIC INCREASED [None]
  - DIARRHOEA [None]
  - RECTAL HAEMORRHAGE [None]
